FAERS Safety Report 8455925 (Version 4)
Quarter: 2012Q4

REPORT INFORMATION
  Report Type: Report from Study
  Country: ES (occurrence: ES)
  Receive Date: 20120313
  Receipt Date: 20121116
  Transmission Date: 20130627
  Serious: Yes (Hospitalization)
  Sender: FDA-Public Use
  Company Number: ES-JNJFOC-20120301741

PATIENT
  Age: 60 Year
  Sex: Male
  Weight: 84 kg

DRUGS (8)
  1. ABIRATERONE ACETATE [Suspect]
     Route: 048
  2. ABIRATERONE ACETATE [Suspect]
     Indication: PROSTATE CANCER METASTATIC
     Route: 048
     Dates: start: 20111007
  3. PREDNISONE [Suspect]
     Indication: PROSTATE CANCER METASTATIC
     Route: 048
  4. PREDNISONE [Suspect]
     Indication: PROSTATE CANCER METASTATIC
     Route: 048
     Dates: end: 20120227
  5. PREDNISONE [Suspect]
     Indication: PROSTATE CANCER METASTATIC
     Route: 048
     Dates: start: 20111007
  6. PROCRIN [Concomitant]
     Indication: HORMONE THERAPY
     Route: 065
     Dates: start: 20090722
  7. NAPRILENE [Concomitant]
     Indication: HYPERTENSION
     Route: 065
     Dates: start: 20120124
  8. NAPRILENE [Concomitant]
     Indication: HYPERTENSION
     Route: 065
     Dates: start: 20111202, end: 20120124

REACTIONS (1)
  - Hepatic failure [Recovering/Resolving]
